FAERS Safety Report 8900384 (Version 1)
Quarter: 2012Q4

REPORT INFORMATION
  Report Type: 
  Country: ES (occurrence: ES)
  Receive Date: 20121109
  Receipt Date: 20121109
  Transmission Date: 20130627
  Serious: Yes (Death, Other)
  Sender: FDA-Public Use
  Company Number: PHHY2012ES102212

PATIENT
  Age: 40 Year
  Sex: Female

DRUGS (2)
  1. ZOMETA [Suspect]
     Indication: BREAST CANCER METASTATIC
  2. UNSPECIFIED DRUG [Suspect]

REACTIONS (3)
  - Cardiac failure [Fatal]
  - Toxicity to various agents [Unknown]
  - Hypocalcaemia [Recovered/Resolved]
